FAERS Safety Report 8356606-0 (Version None)
Quarter: 2012Q2

REPORT INFORMATION
  Report Type: 
  Country: None (occurrence: None)
  Receive Date: 20120514
  Receipt Date: 20120509
  Transmission Date: 20120825
  Serious: Yes (Other)
  Sender: FDA-Public Use
  Company Number: PHHY2012FR040202

PATIENT
  Age: 72 Year
  Sex: Female

DRUGS (1)
  1. FEMARA [Suspect]
     Indication: BREAST CANCER
     Dosage: 1 DF, DAILY
     Route: 048
     Dates: start: 20110801, end: 20120229

REACTIONS (2)
  - CHORIORETINAL DISORDER [None]
  - VISUAL IMPAIRMENT [None]
